FAERS Safety Report 23970739 (Version 1)
Quarter: 2024Q2

REPORT INFORMATION
  Report Type: Spontaneous
  Country: US (occurrence: US)
  Receive Date: 20240613
  Receipt Date: 20240613
  Transmission Date: 20240716
  Serious: Yes (Other)
  Sender: FDA-Public Use
  Company Number: US-JNJFOC-20240164071

PATIENT
  Age: 62 Year
  Sex: Female

DRUGS (2)
  1. RYBREVANT [Suspect]
     Active Substance: AMIVANTAMAB-VMJW
     Indication: Non-small cell lung cancer metastatic
     Route: 065
  2. OSIMERTINIB [Concomitant]
     Active Substance: OSIMERTINIB

REACTIONS (4)
  - Erosive pustular dermatosis [Recovered/Resolved]
  - Dermatitis acneiform [Recovering/Resolving]
  - Paronychia [Recovering/Resolving]
  - Skin mass [Unknown]
